FAERS Safety Report 5221077-X (Version None)
Quarter: 2007Q1

REPORT INFORMATION
  Report Type: 
  Country: None (occurrence: None)
  Receive Date: 20070126
  Receipt Date: 20070118
  Transmission Date: 20070707
  Serious: Yes (Other)
  Sender: FDA-Public Use
  Company Number: GB-GLAXOSMITHKLINE-B0454682A

PATIENT
  Sex: Female

DRUGS (1)
  1. NIQUITIN CQ 4MG LOZENGE [Suspect]
     Route: 048

REACTIONS (1)
  - EMOTIONAL DISORDER [None]
